FAERS Safety Report 25962776 (Version 1)
Quarter: 2025Q4

REPORT INFORMATION
  Report Type: Spontaneous
  Country: US (occurrence: None)
  Receive Date: 20251025
  Receipt Date: 20251025
  Transmission Date: 20260118
  Serious: Yes (Hospitalization)
  Sender: FDA-CTU
  Company Number: None

PATIENT
  Age: 62 Year
  Sex: Female
  Weight: 81.2 kg

DRUGS (3)
  1. CARBOPLATIN [Suspect]
     Active Substance: CARBOPLATIN
     Dates: end: 20250923
  2. GEMCITABINE HYDROCHLORIDE [Suspect]
     Active Substance: GEMCITABINE HYDROCHLORIDE
     Dates: end: 20250923
  3. PACLITAXEL [Suspect]
     Active Substance: PACLITAXEL
     Dates: end: 20251014

REACTIONS (8)
  - Hyponatraemia [None]
  - Hypophosphataemia [None]
  - Neutropenia [None]
  - Headache [None]
  - Pyrexia [None]
  - Cough [None]
  - Malaise [None]
  - Liver function test increased [None]

NARRATIVE: CASE EVENT DATE: 20251020
